FAERS Safety Report 8305734 (Version 2)
Quarter: 2013Q4

REPORT INFORMATION
  Report Type: Spontaneous
  Country: US (occurrence: US)
  Receive Date: 20111221
  Receipt Date: 20131217
  Transmission Date: 20140711
  Serious: Yes (Hospitalization)
  Sender: FDA-Public Use
  Company Number: US-GLAXOSMITHKLINE-A0938851A

PATIENT
  Age: 66 Year
  Sex: Male
  Weight: 125.9 kg

DRUGS (2)
  1. AVANDIA [Suspect]
     Indication: DIABETES MELLITUS
     Dosage: 4MG PER DAY
     Route: 048
     Dates: start: 200006, end: 201007
  2. AVANDAMET [Suspect]
     Indication: DIABETES MELLITUS
     Route: 048
     Dates: start: 200506, end: 200510

REACTIONS (7)
  - Cerebrovascular accident [Unknown]
  - Coronary artery bypass [Unknown]
  - Cardiovascular disorder [Unknown]
  - Swelling [Unknown]
  - Transient ischaemic attack [Unknown]
  - Myocardial infarction [Unknown]
  - Cardiac failure congestive [Unknown]
